FAERS Safety Report 4597905-8 (Version None)
Quarter: 2005Q1

REPORT INFORMATION
  Report Type: 
  Country: None (occurrence: None)
  Receive Date: 20050125
  Receipt Date: 20040914
  Transmission Date: 20050727
  Serious: No
  Sender: FDA-Public Use
  Company Number: USA040978110

PATIENT
  Age: 68 Year
  Sex: Female
  Weight: 74 kg

DRUGS (5)
  1. FORTEO [Suspect]
     Indication: OSTEOPOROSIS
     Dosage: 20 UG/1 DAY
     Dates: start: 20040901
  2. CALCIUM WITH VITAMIN D [Concomitant]
  3. SYNTHROID [Concomitant]
  4. ZETIA [Concomitant]
  5. LIPITOR [Concomitant]

REACTIONS (2)
  - HYPERHIDROSIS [None]
  - INJECTION SITE PAIN [None]
